FAERS Safety Report 7420354-1 (Version None)
Quarter: 2011Q2

REPORT INFORMATION
  Report Type: 
  Country: None (occurrence: None)
  Receive Date: 20110418
  Receipt Date: 20110407
  Transmission Date: 20111010
  Serious: Yes (Hospitalization)
  Sender: FDA-Public Use
  Company Number: US-JNJFOC-20110404026

PATIENT
  Sex: Female

DRUGS (5)
  1. DURAGESIC [Suspect]
     Indication: BACK PAIN
  2. DURAGESIC [Suspect]
  3. FENTANYL-100 [Suspect]
     Indication: BACK PAIN
     Route: 062
  4. DURAGESIC [Suspect]
     Indication: PRODUCT USED FOR UNKNOWN INDICATION
     Route: 062
  5. UNKNOWN MEDICATION [Concomitant]
     Route: 065

REACTIONS (5)
  - VOMITING [None]
  - DEHYDRATION [None]
  - HEADACHE [None]
  - INSOMNIA [None]
  - TREMOR [None]
